FAERS Safety Report 9219538 (Version 4)
Quarter: 2013Q3

REPORT INFORMATION
  Report Type: Report from Study
  Country: NL (occurrence: NL)
  Receive Date: 20130409
  Receipt Date: 20130907
  Transmission Date: 20140515
  Serious: Yes (Hospitalization, Other)
  Sender: FDA-Public Use
  Company Number: NL-CELGENEUS-114-21880-13034651

PATIENT
  Age: 83 Year
  Sex: Male
  Weight: 92 kg

DRUGS (5)
  1. REVLIMID [Suspect]
     Indication: PLASMA CELL MYELOMA
     Route: 048
     Dates: start: 20130206, end: 20130227
  2. REVLIMID [Suspect]
     Route: 048
     Dates: start: 20100426, end: 20101128
  3. REVLIMID [Suspect]
     Route: 048
     Dates: start: 20101206
  4. BORTEZOMIB [Concomitant]
     Indication: PLASMA CELL MYELOMA
     Dates: start: 20100426, end: 20101122
  5. DEXAMETHASONE [Concomitant]
     Indication: PLASMA CELL MYELOMA
     Dosage: D 1-2 ,8-9,15-16
     Dates: start: 20100426, end: 20101128

REACTIONS (1)
  - Pleural mesothelioma malignant [Not Recovered/Not Resolved]
